FAERS Safety Report 19588393 (Version 2)
Quarter: 2024Q3

REPORT INFORMATION
  Report Type: Spontaneous
  Country: EG (occurrence: EG)
  Receive Date: 20210721
  Receipt Date: 20240924
  Transmission Date: 20241017
  Serious: Yes (Death, Life-Threatening, Hospitalization, Other)
  Sender: ACCORD
  Company Number: EG-ACCORD-219333

PATIENT
  Age: 12 Year
  Sex: Female

DRUGS (14)
  1. MYCOPHENOLATE MOFETIL [Suspect]
     Active Substance: MYCOPHENOLATE MOFETIL
     Indication: Systemic lupus erythematosus
     Dosage: 2 GRAM
     Dates: start: 2016
  2. HYDROXYCHLOROQUINE [Suspect]
     Active Substance: HYDROXYCHLOROQUINE
     Indication: Systemic lupus erythematosus
     Dates: start: 2016
  3. CYCLOPHOSPHAMIDE [Suspect]
     Active Substance: CYCLOPHOSPHAMIDE
     Indication: Systemic lupus erythematosus
     Dates: start: 2016
  4. PREDNISONE [Suspect]
     Active Substance: PREDNISONE
     Indication: Systemic lupus erythematosus
     Dosage: DECREASED TO 30 MG/DAY, FURTHER DECREASED TO 20 MG/DAY
     Dates: start: 2016, end: 2016
  5. MYCOPHENOLATE MOFETIL [Suspect]
     Active Substance: MYCOPHENOLATE MOFETIL
     Indication: Lupus nephritis
     Dosage: 2 GRAM
     Dates: start: 2016
  6. MYCOPHENOLATE MOFETIL [Suspect]
     Active Substance: MYCOPHENOLATE MOFETIL
     Indication: Systemic lupus erythematosus
     Dates: start: 2016
  7. MYCOPHENOLATE MOFETIL [Suspect]
     Active Substance: MYCOPHENOLATE MOFETIL
     Indication: Lupus nephritis
     Dates: start: 2016
  8. PREDNISONE [Suspect]
     Active Substance: PREDNISONE
     Indication: Lupus nephritis
     Dates: start: 2016, end: 2016
  9. CYCLOPHOSPHAMIDE [Suspect]
     Active Substance: CYCLOPHOSPHAMIDE
     Indication: Lupus nephritis
     Dates: start: 2016
  10. HYDROXYCHLOROQUINE [Suspect]
     Active Substance: HYDROXYCHLOROQUINE
     Indication: Lupus nephritis
     Dates: start: 2016
  11. PREDNISONE [Suspect]
     Active Substance: PREDNISONE
     Indication: Systemic lupus erythematosus
     Dates: start: 2016, end: 2016
  12. PREDNISONE [Suspect]
     Active Substance: PREDNISONE
     Indication: Lupus nephritis
     Dates: start: 2016, end: 2016
  13. PREDNISONE [Suspect]
     Active Substance: PREDNISONE
     Indication: Systemic lupus erythematosus
     Dates: start: 2016, end: 2016
  14. PREDNISONE [Suspect]
     Active Substance: PREDNISONE
     Indication: Lupus nephritis
     Dates: start: 2016, end: 2016

REACTIONS (8)
  - Cryptococcal cutaneous infection [Fatal]
  - Meningitis cryptococcal [Fatal]
  - Optic atrophy [Fatal]
  - Infection [Fatal]
  - Disseminated cryptococcosis [Fatal]
  - Intracranial pressure increased [Fatal]
  - Cerebral atrophy [Fatal]
  - Cerebral ventricle dilatation [Fatal]

NARRATIVE: CASE EVENT DATE: 20160101
